FAERS Safety Report 5229387-7 (Version None)
Quarter: 2007Q1

REPORT INFORMATION
  Report Type: 
  Country: None (occurrence: None)
  Receive Date: 20070129
  Receipt Date: 20070119
  Transmission Date: 20070707
  Serious: Yes (Other)
  Sender: FDA-Public Use
  Company Number: HQWYE360122NOV06

PATIENT
  Sex: Male
  Weight: 10 kg

DRUGS (1)
  1. BENEFIX [Suspect]
     Indication: PROPHYLAXIS
     Dosage: 750 IU 2X PER 1 WK, INTRAVENOUS
     Route: 042
     Dates: start: 20060922

REACTIONS (2)
  - FACTOR IX INHIBITION [None]
  - HYPERSENSITIVITY [None]
